FAERS Safety Report 15786572 (Version 3)
Quarter: 2019Q1

REPORT INFORMATION
  Report Type: Spontaneous
  Country: GR (occurrence: GR)
  Receive Date: 20190103
  Receipt Date: 20190205
  Transmission Date: 20190417
  Serious: Yes (Death, Hospitalization, Other)
  Sender: FDA-Public Use
  Company Number: GR-GLAXOSMITHKLINE-GR2018235203

PATIENT
  Age: 76 Year
  Sex: Female

DRUGS (2)
  1. QUINAPRIL. [Concomitant]
     Active Substance: QUINAPRIL
     Indication: HYPERTENSION
     Dosage: UNK
     Route: 065
  2. DICLOFENAC (DICLOFENAC SODIUM) [Suspect]
     Active Substance: DICLOFENAC SODIUM
     Indication: MUSCULOSKELETAL PAIN
     Dosage: 50 MG, BID
     Route: 065

REACTIONS (8)
  - Jaundice [Fatal]
  - Nausea [Fatal]
  - Autoimmune hepatitis [Fatal]
  - Acute hepatic failure [Fatal]
  - Hepatosplenomegaly [Fatal]
  - Gastric haemorrhage [Fatal]
  - Encephalopathy [Fatal]
  - Vomiting [Fatal]
